FAERS Safety Report 16961913 (Version 5)
Quarter: 2020Q2

REPORT INFORMATION
  Report Type: Report from Study
  Country: US (occurrence: US)
  Receive Date: 20191025
  Receipt Date: 20200424
  Transmission Date: 20200713
  Serious: Yes (Hospitalization, Other)
  Sender: FDA-Public Use
  Company Number: US-MALLINCKRODT-T201903698

PATIENT
  Sex: Female
  Weight: 140 kg

DRUGS (10)
  1. REPOSITORY CORTICOTROPIN INJECTION [Suspect]
     Active Substance: CORTICOTROPIN
     Dosage: 80 UNITS ON MONDAYS, FRIDAY
     Route: 058
     Dates: start: 2015
  2. REPOSITORY CORTICOTROPIN INJECTION [Suspect]
     Active Substance: CORTICOTROPIN
     Dosage: UNK, REDUCED ACTHAR TO 40 UNITS (SUNDAYS)
     Route: 058
     Dates: start: 2015
  3. REPOSITORY CORTICOTROPIN INJECTION [Suspect]
     Active Substance: CORTICOTROPIN
     Dosage: 40 UNITS / .5 ML, OTHER (EVERY OTHER WEEK)
     Route: 058
     Dates: start: 20150611, end: 201907
  4. REPOSITORY CORTICOTROPIN INJECTION [Suspect]
     Active Substance: CORTICOTROPIN
     Dosage: 40 UNITS ONE TIME WEEKLY
     Route: 030
  5. REPOSITORY CORTICOTROPIN INJECTION [Suspect]
     Active Substance: CORTICOTROPIN
     Indication: PULMONARY SARCOIDOSIS
     Dosage: 80 UNITS / 1 ML, 2 TIMES PER WEEK
     Route: 058
     Dates: start: 20150611
  6. CELLCEPT [Suspect]
     Active Substance: MYCOPHENOLATE MOFETIL\MYCOPHENOLATE MOFETIL HYDROCHLORIDE
     Dosage: 2 TABLETS,TWICE A DAY
     Route: 065
  7. REPOSITORY CORTICOTROPIN INJECTION [Suspect]
     Active Substance: CORTICOTROPIN
     Dosage: 40 UNITS / 0.5 ML, ONE TIME WEEKLY (MONDAY)
     Route: 058
  8. CELLCEPT [Suspect]
     Active Substance: MYCOPHENOLATE MOFETIL\MYCOPHENOLATE MOFETIL HYDROCHLORIDE
     Indication: PRODUCT USED FOR UNKNOWN INDICATION
     Dosage: 1PILL, TWICE A DAY
     Route: 065
  9. REPOSITORY CORTICOTROPIN INJECTION [Suspect]
     Active Substance: CORTICOTROPIN
     Dosage: 80 UNITS/1 ML, TWICE A WEEK
     Route: 058
     Dates: start: 201907, end: 2019
  10. REPOSITORY CORTICOTROPIN INJECTION [Suspect]
     Active Substance: CORTICOTROPIN
     Dosage: 40 UNITS/.5 ML, TWICE A WEEK, MONDAY AND FRIDAY
     Route: 058
     Dates: start: 2019

REACTIONS (14)
  - Chest discomfort [Not Recovered/Not Resolved]
  - Fatigue [Not Recovered/Not Resolved]
  - Interstitial lung disease [Unknown]
  - Gastroenteritis viral [Recovering/Resolving]
  - Weight increased [Not Recovered/Not Resolved]
  - Sarcoidosis [Unknown]
  - Memory impairment [Unknown]
  - Depression [Not Recovered/Not Resolved]
  - Condition aggravated [Unknown]
  - Pulmonary fibrosis [Unknown]
  - Vaccination complication [Unknown]
  - Dependence on oxygen therapy [Recovering/Resolving]
  - Dyspnoea [Recovering/Resolving]
  - Cardiac valve disease [Not Recovered/Not Resolved]

NARRATIVE: CASE EVENT DATE: 2019
